FAERS Safety Report 4843237-X (Version None)
Quarter: 2005Q4

REPORT INFORMATION
  Report Type: 
  Country: None (occurrence: None)
  Receive Date: 20051201
  Receipt Date: 20051004
  Transmission Date: 20060501
  Serious: Yes (Other)
  Sender: FDA-Public Use
  Company Number: US-MERCK-0510USA03322

PATIENT
  Age: 68 Year
  Sex: Female
  Weight: 84 kg

DRUGS (7)
  1. VIOXX [Suspect]
     Route: 048
     Dates: start: 20000301, end: 20011001
  2. LAXAGEN [Concomitant]
     Route: 065
  3. ZYRTEC [Concomitant]
     Route: 065
  4. COREG [Concomitant]
     Route: 065
  5. ASPIRIN [Concomitant]
     Route: 065
  6. AMBIEN [Concomitant]
     Route: 065
  7. TYLENOL W/ CODEINE NO. 3 [Concomitant]
     Route: 065

REACTIONS (1)
  - CEREBROVASCULAR ACCIDENT [None]
